FAERS Safety Report 7339378-8 (Version None)
Quarter: 2011Q1

REPORT INFORMATION
  Report Type: 
  Country: None (occurrence: None)
  Receive Date: 20110308
  Receipt Date: 20110228
  Transmission Date: 20110831
  Serious: Yes (Other)
  Sender: FDA-Public Use
  Company Number: US-US-EMD SERONO, INC.-7002291

PATIENT
  Sex: Male

DRUGS (3)
  1. UNSPECIFIED MEDICATION [Concomitant]
     Indication: TYPE 2 DIABETES MELLITUS
     Route: 048
  2. REBIF [Suspect]
     Indication: MULTIPLE SCLEROSIS
     Route: 058
     Dates: start: 20091015, end: 20100201
  3. TYLENOL [Concomitant]
     Indication: PREMEDICATION

REACTIONS (6)
  - INJECTION SITE PRURITUS [None]
  - CORONARY ARTERY OCCLUSION [None]
  - INJECTION SITE ERYTHEMA [None]
  - WEIGHT INCREASED [None]
  - ASTHENIA [None]
  - GAIT DISTURBANCE [None]
